FAERS Safety Report 10414842 (Version 1)
Quarter: 2014Q3

REPORT INFORMATION
  Report Type: Spontaneous
  Country: US (occurrence: None)
  Receive Date: 20140827
  Receipt Date: 20140827
  Transmission Date: 20150326
  Serious: No
  Sender: FDA-Public Use
  Company Number: None

PATIENT
  Age: 77 Year
  Sex: Male
  Weight: 113.4 kg

DRUGS (1)
  1. METFORMIN [Suspect]
     Active Substance: METFORMIN HYDROCHLORIDE
     Indication: DIABETES MELLITUS
     Dosage: 1 TABLET BID ORAL
     Route: 048
     Dates: start: 20140714, end: 20140826

REACTIONS (2)
  - Product solubility abnormal [None]
  - Blood glucose abnormal [None]

NARRATIVE: CASE EVENT DATE: 20140824
